FAERS Safety Report 4883479-0 (Version None)
Quarter: 2006Q1

REPORT INFORMATION
  Report Type: 
  Country: None (occurrence: None)
  Receive Date: 20060118
  Receipt Date: 20060106
  Transmission Date: 20060701
  Serious: Yes (Death, Other)
  Sender: FDA-Public Use
  Company Number: ES-MERCK-0601ESP00010

PATIENT
  Weight: 1 kg

DRUGS (33)
  1. CRIXIVAN [Suspect]
     Indication: HIV INFECTION
  2. CRIXIVAN [Suspect]
  3. ZIDOVUDINE [Suspect]
     Indication: HIV INFECTION
  4. ZIDOVUDINE [Suspect]
  5. ZIDOVUDINE [Suspect]
  6. ZIDOVUDINE [Suspect]
  7. LAMIVUDINE [Suspect]
     Indication: HIV INFECTION
  8. LAMIVUDINE [Suspect]
  9. LAMIVUDINE [Suspect]
  10. NELFINAVIR MESYLATE [Suspect]
     Indication: HIV INFECTION
  11. NELFINAVIR MESYLATE [Suspect]
  12. STAVUDINE [Suspect]
     Indication: HIV INFECTION
  13. STAVUDINE [Suspect]
  14. STAVUDINE [Suspect]
  15. STAVUDINE [Suspect]
  16. STAVUDINE [Suspect]
  17. DIDANOSINE [Suspect]
     Indication: HIV INFECTION
  18. DIDANOSINE [Suspect]
  19. DIDANOSINE [Suspect]
  20. DIDANOSINE [Suspect]
  21. DIDANOSINE [Suspect]
  22. NEVIRAPINE [Suspect]
     Indication: HIV INFECTION
  23. NEVIRAPINE [Suspect]
  24. NEVIRAPINE [Suspect]
  25. NEVIRAPINE [Suspect]
  26. NEVIRAPINE [Suspect]
  27. NEVIRAPINE [Suspect]
  28. ABACAVIR SULFATE [Suspect]
     Indication: HIV INFECTION
  29. ABACAVIR SULFATE [Suspect]
  30. ABACAVIR SULFATE [Suspect]
  31. ABACAVIR SULFATE [Suspect]
  32. RITONAVIR [Suspect]
     Indication: HIV INFECTION
  33. RITONAVIR [Suspect]

REACTIONS (2)
  - INTRA-UTERINE DEATH [None]
  - SMALL FOR DATES BABY [None]
